FAERS Safety Report 7285519-0 (Version None)
Quarter: 2011Q1

REPORT INFORMATION
  Report Type: 
  Country: None (occurrence: None)
  Receive Date: 20110131
  Receipt Date: 20110114
  Transmission Date: 20110831
  Serious: Yes (Other)
  Sender: FDA-Public Use
  Company Number: DSA_44783-2011

PATIENT
  Age: 50 Year
  Sex: Female
  Weight: 59.013 kg

DRUGS (6)
  1. ALPRAZOLAM [Suspect]
     Dosage: (DF)
  2. ALPRAZOLAM [Suspect]
     Dosage: (DF)
  3. ATIVAN [Suspect]
     Dosage: (DF)
  4. XANAX [Suspect]
     Dosage: (1 MG TID ORAL )
     Route: 048
     Dates: start: 20030401
  5. ALPRAZOLAM [Suspect]
     Dosage: (1 MG TID ORAL)
     Route: 048
     Dates: start: 20030411
  6. SEROQUEL [Suspect]
     Dosage: (25 MG, AT NIGHT)

REACTIONS (7)
  - FEELING JITTERY [None]
  - HYPERHIDROSIS [None]
  - PRODUCT RECONSTITUTION ISSUE [None]
  - PRODUCT SUBSTITUTION ISSUE [None]
  - INFLUENZA LIKE ILLNESS [None]
  - DRUG INEFFECTIVE [None]
  - PRODUCT TASTE ABNORMAL [None]
